FAERS Safety Report 6910342-3 (Version None)
Quarter: 2010Q3

REPORT INFORMATION
  Report Type: 
  Country: None (occurrence: None)
  Receive Date: 20100806
  Receipt Date: 20100728
  Transmission Date: 20110219
  Serious: Yes (Hospitalization)
  Sender: FDA-Public Use
  Company Number: JP-PFIZER INC-2010057053

PATIENT
  Age: 81 Year
  Sex: Female
  Weight: 39 kg

DRUGS (10)
  1. CELECOX [Suspect]
     Indication: BACK PAIN
     Dosage: 100 MG, 2X/DAY
     Route: 048
     Dates: start: 20100324, end: 20100407
  2. NEUROTROPIN [Concomitant]
     Indication: BACK PAIN
     Dosage: 4 IU, 2X/DAY
     Dates: start: 20100331, end: 20100405
  3. MICARDIS [Concomitant]
     Dosage: UNK
     Route: 048
  4. FAMOTIDINE [Concomitant]
     Dosage: UNK
     Route: 048
  5. EVISTA [Concomitant]
     Dosage: UNK
     Route: 048
  6. ALFACALCIDOL [Concomitant]
     Dosage: UNK
  7. METHYCOBAL [Concomitant]
     Dosage: UNK
     Route: 048
  8. NICERGOLINE [Concomitant]
     Dosage: UNK
     Route: 048
  9. ARICEPT [Concomitant]
     Dosage: UNK
     Route: 048
  10. AM [Concomitant]
     Dosage: UNK

REACTIONS (6)
  - FALL [None]
  - MOVEMENT DISORDER [None]
  - PLATELET COUNT DECREASED [None]
  - PRURITUS [None]
  - PURPURA [None]
  - PYREXIA [None]
